FAERS Safety Report 9855285 (Version 3)
Quarter: 2014Q2

REPORT INFORMATION
  Report Type: Report from Study
  Country: JP (occurrence: JP)
  Receive Date: 20140130
  Receipt Date: 20140411
  Transmission Date: 20141212
  Serious: Yes (Death, Life-Threatening, Other)
  Sender: FDA-Public Use
  Company Number: JP-MPIJNJ-2014JNJ000182

PATIENT
  Sex: 0

DRUGS (6)
  1. VELCADE [Suspect]
     Indication: PLASMA CELL MYELOMA
     Dosage: 1.3 MG/M2, QD
     Route: 058
     Dates: start: 20131213, end: 20131216
  2. CYCLOPHOSPHAMIDE [Concomitant]
     Indication: PLASMA CELL MYELOMA
  3. DEXAMETHASONE [Concomitant]
  4. FEBURIC [Concomitant]
     Indication: RENAL FAILURE ACUTE
     Dosage: 20 MG, QD
     Route: 048
     Dates: start: 20131203, end: 20131219
  5. EPADEL                             /01682401/ [Concomitant]
     Indication: RENAL FAILURE ACUTE
     Dosage: 1800 MG, QD
     Route: 048
     Dates: start: 20131206, end: 20131219
  6. JUSO [Concomitant]
     Indication: RENAL FAILURE ACUTE
     Dosage: 1500 MG, QD
     Route: 048
     Dates: start: 20131203, end: 20131219

REACTIONS (5)
  - Tumour lysis syndrome [Fatal]
  - Hyperkalaemia [Fatal]
  - Renal failure acute [Not Recovered/Not Resolved]
  - Drug eruption [Unknown]
  - Injection site erythema [Unknown]
